FAERS Safety Report 6348764-4 (Version None)
Quarter: 2009Q3

REPORT INFORMATION
  Report Type: 
  Country: None (occurrence: None)
  Receive Date: 20090911
  Receipt Date: 20090902
  Transmission Date: 20100115
  Serious: Yes (Hospitalization)
  Sender: FDA-Public Use
  Company Number: US-AMGEN-QUU362705

PATIENT
  Sex: Male

DRUGS (2)
  1. NEUPOGEN [Suspect]
     Indication: CHEMOTHERAPY
     Dates: start: 20090814
  2. CLADRIBINE [Concomitant]
     Dates: start: 20090810

REACTIONS (4)
  - BACTERAEMIA [None]
  - DRUG INEFFECTIVE [None]
  - ENTEROBACTER BACTERAEMIA [None]
  - WHITE BLOOD CELL COUNT DECREASED [None]
